FAERS Safety Report 24903760 (Version 1)
Quarter: 2025Q1

REPORT INFORMATION
  Report Type: Spontaneous
  Country: EG (occurrence: EG)
  Receive Date: 20250130
  Receipt Date: 20250130
  Transmission Date: 20250409
  Serious: Yes (Other)
  Sender: HIKMA
  Company Number: EG-HIKMA PHARMACEUTICALS-EG-H14001-25-00716

PATIENT
  Age: 68 Year
  Sex: Female
  Weight: 50 kg

DRUGS (2)
  1. DOXORUBICIN [Suspect]
     Active Substance: DOXORUBICIN
     Indication: Uterine cancer
     Dosage: 90 MILLIGRAM, 3W
     Route: 041
  2. DOXORUBICIN [Suspect]
     Active Substance: DOXORUBICIN
     Dosage: 90 MILLIGRAM, 3W
     Route: 041
     Dates: start: 20241201

REACTIONS (3)
  - Constipation [Unknown]
  - Thrombocytopenia [Unknown]
  - Vomiting [Unknown]

NARRATIVE: CASE EVENT DATE: 20241207
